FAERS Safety Report 13298097 (Version 2)
Quarter: 2017Q2

REPORT INFORMATION
  Report Type: Report from Study
  Country: US (occurrence: US)
  Receive Date: 20170306
  Receipt Date: 20170505
  Transmission Date: 20170830
  Serious: Yes (Death)
  Sender: FDA-Public Use
  Company Number: US-PFIZER INC-2017093617

PATIENT
  Age: 74 Year
  Sex: Female

DRUGS (1)
  1. FOSPHENYTOIN SODIUM. [Suspect]
     Active Substance: FOSPHENYTOIN SODIUM
     Dosage: UNK, (1050 DOSE PHENYTOIN EQUIVALENTS)

REACTIONS (2)
  - Hypotension [Fatal]
  - Bradycardia [Fatal]
